FAERS Safety Report 7426674-9 (Version None)
Quarter: 2011Q2

REPORT INFORMATION
  Report Type: 
  Country: None (occurrence: None)
  Receive Date: 20110420
  Receipt Date: 20110407
  Transmission Date: 20111010
  Serious: Yes (Other)
  Sender: FDA-Public Use
  Company Number: US-BAYER-2011-031477

PATIENT
  Sex: Male

DRUGS (4)
  1. PLAVIX [Concomitant]
     Dosage: UNK
  2. ASPIRIN [Suspect]
     Indication: ISCHAEMIC HEART DISEASE PROPHYLAXIS
     Dosage: 325 MG, QD, BOTTLE COUNT 50S
     Route: 048
     Dates: start: 20110401, end: 20110406
  3. MULTI-VITAMIN [Concomitant]
  4. ANTIHYPERTENSIVES [Concomitant]

REACTIONS (1)
  - EPISTAXIS [None]
